FAERS Safety Report 5069714-7 (Version None)
Quarter: 2006Q3

REPORT INFORMATION
  Report Type: 
  Country: None (occurrence: None)
  Receive Date: 20060803
  Receipt Date: 20060623
  Transmission Date: 20061208
  Serious: Yes (Hospitalization)
  Sender: FDA-Public Use
  Company Number: US-BRISTOL-MYERS SQUIBB COMPANY-13422597

PATIENT
  Age: 46 Year
  Sex: Male
  Weight: 55 kg

DRUGS (14)
  1. ERBITUX [Suspect]
     Indication: NEOPLASM MALIGNANT
     Dosage: 420 MG IV 60 MIN DAY 1, 8 AND 15
     Route: 042
     Dates: start: 20060425, end: 20060509
  2. CISPLATIN [Suspect]
     Dosage: 126 MG IV 30-60 MIN DAY 15
     Route: 042
     Dates: start: 20060425, end: 20060509
  3. COLACE [Concomitant]
     Route: 048
  4. ALBUTEROL [Concomitant]
     Dosage: 1 - 2 PUFFS Q 12 H PRN
     Route: 055
  5. LORTAB [Concomitant]
     Indication: PAIN
     Dosage: 7.5 MG/500 /15 ML EVERY 4-6 HOURS
  6. LOMOTIL [Concomitant]
     Indication: DIARRHOEA
     Dosage: 2.5 MG , 1 OR 2 DOSAGE FORMS, ORALLY EVERY 4-6 HOURS, AS NECESSARY
  7. MUCINEX [Concomitant]
  8. NYSTATIN [Concomitant]
  9. FLAGYL [Concomitant]
  10. BACTRIM DS [Concomitant]
  11. REGLAN [Concomitant]
  12. VITAMIN B6 [Concomitant]
  13. ISONIAZID [Concomitant]
  14. RADIATION THERAPY [Concomitant]

REACTIONS (5)
  - ABDOMINAL PAIN [None]
  - CLOSTRIDIAL INFECTION [None]
  - DIARRHOEA [None]
  - NAUSEA [None]
  - VOMITING [None]
